FAERS Safety Report 11334878 (Version 1)
Quarter: 2015Q3

REPORT INFORMATION
  Report Type: Spontaneous
  Country: US (occurrence: None)
  Receive Date: 20150731
  Receipt Date: 20150731
  Transmission Date: 20151125
  Serious: Yes (Other)
  Sender: FDA-Public Use
  Company Number: 001953669A

PATIENT
  Age: 11 Year
  Sex: Female

DRUGS (4)
  1. X OUT SPOT CORRECTOR [Suspect]
     Active Substance: SULFUR
     Indication: ACNE
     Dosage: TWICE, DERMAL
     Dates: start: 20150525, end: 20150701
  2. X-OUT WASH-IN TREATMENT [Suspect]
     Active Substance: BENZOYL PEROXIDE
     Indication: ACNE
     Dosage: TWICE, DERMAL
     Dates: start: 20150525, end: 20150701
  3. X OUT CLEANSING BODY BAR [Suspect]
     Active Substance: SALICYLIC ACID
     Indication: ACNE
     Dosage: TWICE, DERMAL
     Dates: start: 20150525, end: 20150701
  4. X OUT DAILY BODY SCRUB [Suspect]
     Active Substance: SALICYLIC ACID
     Indication: ACNE
     Dosage: YWICE, DERMAL
     Dates: start: 20150525, end: 20150701

REACTIONS (3)
  - Pruritus [None]
  - Throat irritation [None]
  - Burns first degree [None]

NARRATIVE: CASE EVENT DATE: 20150619
